FAERS Safety Report 22098856 (Version 1)
Quarter: 2023Q1

REPORT INFORMATION
  Report Type: Spontaneous
  Country: US (occurrence: None)
  Receive Date: 20230315
  Receipt Date: 20230315
  Transmission Date: 20230418
  Serious: Yes (Other)
  Sender: FDA-Public Use
  Company Number: None

PATIENT
  Age: 36 Year
  Sex: Male

DRUGS (3)
  1. METRONIDAZOLE [Suspect]
     Active Substance: METRONIDAZOLE
     Indication: Clostridium difficile infection
     Route: 065
  2. VANCOMYCIN [Suspect]
     Active Substance: VANCOMYCIN
     Indication: Clostridium difficile infection
     Route: 048
  3. FIDAXOMICIN [Suspect]
     Active Substance: FIDAXOMICIN

REACTIONS (15)
  - Tooth extraction [None]
  - Drug ineffective [None]
  - Haematochezia [None]
  - Abdominal pain [None]
  - Abdominal distension [None]
  - Sleep disorder [None]
  - Diarrhoea [None]
  - Proctalgia [None]
  - Anal fissure [None]
  - Weight decreased [None]
  - Fatigue [None]
  - Social avoidant behaviour [None]
  - Panic attack [None]
  - Anxiety [None]
  - Depression [None]
